FAERS Safety Report 18275471 (Version 1)
Quarter: 2020Q3

REPORT INFORMATION
  Report Type: Other
  Country: US (occurrence: US)
  Receive Date: 20200916
  Receipt Date: 20200916
  Transmission Date: 20201103
  Serious: No
  Sender: FDA-Public Use
  Company Number: US-LEADIANT BIOSCIENCES INC-2020STPI000294

PATIENT
  Sex: Female

DRUGS (1)
  1. MATULANE [Suspect]
     Active Substance: PROCARBAZINE HYDROCHLORIDE
     Indication: HODGKIN^S DISEASE
     Dosage: 150 MG, FOR 7 DAYS STARTING DAY 1 OF CHEMO, REPEAT EVERY 21 DAYS
     Route: 048
     Dates: start: 20200408

REACTIONS (6)
  - Mouth ulceration [Unknown]
  - Haemoglobin decreased [Unknown]
  - Nausea [Unknown]
  - Fatigue [Unknown]
  - Palpitations [Unknown]
  - Bone pain [Unknown]
